FAERS Safety Report 23508485 (Version 1)
Quarter: 2024Q1

REPORT INFORMATION
  Report Type: Spontaneous
  Country: FR (occurrence: FR)
  Receive Date: 20240209
  Receipt Date: 20240209
  Transmission Date: 20240409
  Serious: Yes (Other)
  Sender: FDA-Public Use
  Company Number: FR-ANIPHARMA-2024-FR-000031

PATIENT
  Sex: Female
  Weight: 62 kg

DRUGS (1)
  1. ARIMIDEX [Suspect]
     Active Substance: ANASTROZOLE
     Indication: Hormone receptor positive breast cancer
     Dosage: 1 DF DAILY
     Route: 048
     Dates: start: 20231101

REACTIONS (3)
  - Visual acuity reduced [Unknown]
  - Retinal detachment [Recovered/Resolved]
  - Maculopathy [Unknown]

NARRATIVE: CASE EVENT DATE: 20230117
